FAERS Safety Report 17881166 (Version 1)
Quarter: 2020Q2

REPORT INFORMATION
  Report Type: Spontaneous
  Country: US (occurrence: US)
  Receive Date: 20200610
  Receipt Date: 20200610
  Transmission Date: 20200714
  Serious: Yes (Other)
  Sender: FDA-Public Use
  Company Number: US-HORIZON-PEN-0268-2020

PATIENT
  Age: 60 Year
  Sex: Female

DRUGS (1)
  1. PENNSAID [Suspect]
     Active Substance: DICLOFENAC SODIUM
     Indication: ARTHRITIS

REACTIONS (6)
  - Pain [Unknown]
  - Incorrect dose administered by device [Unknown]
  - Device defective [Unknown]
  - Product administration interrupted [Unknown]
  - Foot operation [Unknown]
  - Musculoskeletal procedural complication [Not Recovered/Not Resolved]

NARRATIVE: CASE EVENT DATE: 202003
